FAERS Safety Report 10918008 (Version 1)
Quarter: 2015Q1

REPORT INFORMATION
  Report Type: Spontaneous
  Country: CZ (occurrence: None)
  Receive Date: 20150311
  Receipt Date: 20150311
  Transmission Date: 20150721
  Serious: Yes (Life-Threatening, Hospitalization)
  Sender: FDA-Public Use
  Company Number: POI0581201500004

PATIENT
  Age: 55 Year
  Sex: Female

DRUGS (3)
  1. METHYLPREDNISOLONE. [Concomitant]
     Active Substance: METHYLPREDNISOLONE
  2. AZATHIOPRINE (AZATHIOPRINE) [Suspect]
     Active Substance: AZATHIOPRINE
     Indication: PEMPHIGUS
  3. CORTICOSTEROIDS [Concomitant]
     Active Substance: CORTICOSTEROID NOS

REACTIONS (7)
  - Pemphigus [None]
  - Weight decreased [None]
  - Skin lesion [None]
  - Bone marrow failure [None]
  - Leukopenia [None]
  - Sepsis [None]
  - Drug ineffective [None]

NARRATIVE: CASE EVENT DATE: 201406
